FAERS Safety Report 6209654-0 (Version None)
Quarter: 2009Q2

REPORT INFORMATION
  Report Type: 
  Country: None (occurrence: None)
  Receive Date: 20090601
  Receipt Date: 20090521
  Transmission Date: 20091009
  Serious: Yes (Other)
  Sender: FDA-Public Use
  Company Number: JP-ASTRAZENECA-2009AP03335

PATIENT
  Age: 59 Year
  Sex: Female
  Weight: 65 kg

DRUGS (8)
  1. MEROPENEM [Suspect]
     Indication: MENINGITIS BACTERIAL
     Route: 042
     Dates: start: 20090420, end: 20090427
  2. MEROPENEM [Suspect]
     Indication: FUNGAEMIA
     Route: 042
     Dates: start: 20090420, end: 20090427
  3. OMEPRAL [Suspect]
  4. AMBISOME [Suspect]
     Indication: MENINGITIS BACTERIAL
     Route: 041
     Dates: start: 20090422, end: 20090427
  5. AMBISOME [Suspect]
     Indication: FUNGAEMIA
     Route: 041
     Dates: start: 20090422, end: 20090427
  6. VICCLOX [Suspect]
     Indication: ENCEPHALITIS HERPES
     Dates: start: 20090421, end: 20090427
  7. DALACIN-S [Suspect]
     Indication: MENINGITIS BACTERIAL
     Route: 041
     Dates: start: 20090423, end: 20090427
  8. DALACIN-S [Suspect]
     Indication: FUNGAEMIA
     Route: 041
     Dates: start: 20090423, end: 20090427

REACTIONS (1)
  - DRUG ERUPTION [None]
